FAERS Safety Report 9369661 (Version 6)
Quarter: 2016Q4

REPORT INFORMATION
  Report Type: Report from Study
  Country: US (occurrence: US)
  Receive Date: 20130626
  Receipt Date: 20161118
  Transmission Date: 20170207
  Serious: Yes (Hospitalization, Other)
  Sender: FDA-Public Use
  Company Number: US-SANOFI-AVENTIS-2013SA063850

PATIENT
  Age: 61 Year
  Sex: Male

DRUGS (1)
  1. AUBAGIO [Suspect]
     Active Substance: TERIFLUNOMIDE
     Indication: PRIMARY PROGRESSIVE MULTIPLE SCLEROSIS
     Dosage: PRODUCT STARTED 8 MONTHS AGO
     Route: 048
     Dates: start: 20121116

REACTIONS (12)
  - Muscle contracture [Unknown]
  - Unevaluable event [Unknown]
  - Tooth fracture [Unknown]
  - Muscle spasms [Unknown]
  - Hypoaesthesia [Unknown]
  - Hypokinesia [Not Recovered/Not Resolved]
  - Pyrexia [Unknown]
  - Product use issue [Unknown]
  - Pneumonia [Recovered/Resolved]
  - Surgery [Unknown]
  - Urinary tract infection [Recovered/Resolved]
  - Urinary tract infection [Unknown]

NARRATIVE: CASE EVENT DATE: 20121116
